FAERS Safety Report 12796484 (Version 1)
Quarter: 2016Q3

REPORT INFORMATION
  Report Type: Spontaneous
  Country: FR (occurrence: FR)
  Receive Date: 20160929
  Receipt Date: 20160929
  Transmission Date: 20161109
  Serious: Yes (Death, Life-Threatening, Hospitalization, Other)
  Sender: FDA-Public Use
  Company Number: FR-BRISTOL-MYERS SQUIBB COMPANY-BMS-2016-077552

PATIENT
  Age: 94 Year
  Sex: Female

DRUGS (4)
  1. MOVICOL [Concomitant]
     Active Substance: POLYETHYLENE GLYCOL 3350\POTASSIUM CHLORIDE\SODIUM BICARBONATE\SODIUM CHLORIDE
     Indication: PRODUCT USED FOR UNKNOWN INDICATION
     Route: 065
  2. COUMADINE [Suspect]
     Active Substance: WARFARIN SODIUM
     Indication: ATRIAL FIBRILLATION
     Dosage: 2 MG, QOD
     Route: 048
     Dates: end: 20160201
  3. DAFALGAN [Concomitant]
     Active Substance: ACETAMINOPHEN
     Indication: PRODUCT USED FOR UNKNOWN INDICATION
     Route: 065
  4. COUMADINE [Suspect]
     Active Substance: WARFARIN SODIUM
     Dosage: 3 MG, QOD
     Route: 048
     Dates: end: 20160201

REACTIONS (4)
  - Generalised tonic-clonic seizure [Recovered/Resolved]
  - Subdural haematoma [Fatal]
  - Fall [Unknown]
  - Lip injury [Unknown]

NARRATIVE: CASE EVENT DATE: 20160129
